FAERS Safety Report 6304537-X (Version None)
Quarter: 2009Q3

REPORT INFORMATION
  Report Type: 
  Country: None (occurrence: None)
  Receive Date: 20090806
  Receipt Date: 20090728
  Transmission Date: 20100115
  Serious: Yes (Other)
  Sender: FDA-Public Use
  Company Number: CHPA2009US16091

PATIENT
  Age: 59 Year
  Sex: Female

DRUGS (4)
  1. EXCEDRIN (MIGRAINE) [Suspect]
     Indication: FIBROMYALGIA
     Dosage: 2 DF, QD (TWICE A WEEK),
     Route: 048
  2. EXCEDRIN (MIGRAINE) [Suspect]
     Indication: MIGRAINE
     Dosage: 2 DF, QD (TWICE A WEEK),
     Route: 048
  3. EXCEDRIN (MIGRAINE) [Suspect]
     Indication: MIGRAINE
     Dosage: 2 DF, QD, ORAL
     Route: 048
  4. TYLENOL [Suspect]

REACTIONS (1)
  - HYPERTENSION [None]
